APPROVED DRUG PRODUCT: RYZUMVI
Active Ingredient: PHENTOLAMINE MESYLATE
Strength: EQ 0.75% BASE
Dosage Form/Route: SOLUTION;OPHTHALMIC
Application: N217064 | Product #001
Applicant: FAMYGEN LIFE SCIENCES INC
Approved: Sep 25, 2023 | RLD: Yes | RS: Yes | Type: RX

PATENTS:
Patent 12201616 | Expires: Oct 25, 2039
Patent 12201615 | Expires: Dec 25, 2039
Patent 11400077 | Expires: Oct 25, 2039
Patent 12350366 | Expires: Jan 31, 2034
Patent 11844858 | Expires: Jan 31, 2034
Patent 9795560 | Expires: Jan 31, 2034
Patent 11090261 | Expires: Jan 31, 2034
Patent 10278918 | Expires: Jan 31, 2034
Patent 10772829 | Expires: Jan 31, 2034

EXCLUSIVITY:
Code: NP | Date: Sep 25, 2026